FAERS Safety Report 9025927 (Version 1)
Quarter: 2012Q4

REPORT INFORMATION
  Report Type: Spontaneous
  Country: US (occurrence: None)
  Receive Date: 20121217
  Receipt Date: 20121217
  Transmission Date: 20130627
  Serious: Yes (Other)
  Sender: FDA-Public Use
  Company Number: None

PATIENT
  Age: 68 Year
  Sex: Female
  Weight: 100.25 kg

DRUGS (1)
  1. ARIXTRA [Suspect]
     Indication: DVT PROPHYLAXIS
     Dosage: 5mg; Once/day; 057
     Dates: start: 20120914, end: 20120916

REACTIONS (4)
  - Atrial fibrillation [None]
  - Post procedural complication [None]
  - Fatigue [None]
  - Dyspnoea [None]
